FAERS Safety Report 16043273 (Version 1)
Quarter: 2019Q1

REPORT INFORMATION
  Report Type: Report from Study
  Country: US (occurrence: US)
  Receive Date: 20190306
  Receipt Date: 20190306
  Transmission Date: 20190418
  Serious: Yes (Other)
  Sender: FDA-Public Use
  Company Number: US-UNITED THERAPEUTICS-UNT-2019-003579

PATIENT
  Sex: Female
  Weight: 61.22 kg

DRUGS (1)
  1. TREPROSTINIL SODIUM (SQ) [Suspect]
     Active Substance: TREPROSTINIL SODIUM
     Indication: PULMONARY ARTERIAL HYPERTENSION
     Dosage: 0.012 ?G/KG, CONTINUING
     Route: 058

REACTIONS (3)
  - Blood glucose decreased [Recovering/Resolving]
  - Diarrhoea [Unknown]
  - Epistaxis [Unknown]
